FAERS Safety Report 24366667 (Version 4)
Quarter: 2025Q1

REPORT INFORMATION
  Report Type: Spontaneous
  Country: BR (occurrence: BR)
  Receive Date: 20240926
  Receipt Date: 20250130
  Transmission Date: 20250409
  Serious: Yes (Other)
  Sender: TEVA
  Company Number: BR-TEVA-VS-3245769

PATIENT
  Age: 37 Year
  Sex: Female
  Weight: 65 kg

DRUGS (7)
  1. METHYLPHENIDATE HYDROCHLORIDE [Suspect]
     Active Substance: METHYLPHENIDATE HYDROCHLORIDE
     Indication: Product used for unknown indication
     Route: 065
     Dates: start: 20250104
  2. METHYLPHENIDATE HYDROCHLORIDE [Suspect]
     Active Substance: METHYLPHENIDATE HYDROCHLORIDE
     Indication: Product used for unknown indication
     Route: 065
  3. METHYLPHENIDATE HYDROCHLORIDE [Suspect]
     Active Substance: METHYLPHENIDATE HYDROCHLORIDE
     Indication: Product used for unknown indication
     Dosage: 1 TABLET (36 MG) IN THE AFTERNOON, METHYLPHENIDATE HYDROCHLORIDE, 54 AND 36 MG, EVERY DAY
     Route: 048
     Dates: start: 202409, end: 20240918
  4. METHYLPHENIDATE HYDROCHLORIDE [Suspect]
     Active Substance: METHYLPHENIDATE HYDROCHLORIDE
     Indication: Product used for unknown indication
     Dosage: 1 TABLET (54 MG) IN THE MORNING, 54 AND 36 MG, EVERY DAY
     Route: 048
     Dates: start: 202409, end: 20240918
  5. METHYLPHENIDATE HYDROCHLORIDE [Suspect]
     Active Substance: METHYLPHENIDATE HYDROCHLORIDE
     Indication: Product used for unknown indication
     Dosage: 1 TABLET (36 MG) IN THE AFTERNOON, METHYLPHENIDATE HYDROCHLORIDE, 54 AND 36 MG, EVERY DAY
     Route: 048
     Dates: start: 20240927, end: 20240927
  6. METHYLPHENIDATE HYDROCHLORIDE [Suspect]
     Active Substance: METHYLPHENIDATE HYDROCHLORIDE
     Indication: Product used for unknown indication
     Dosage: 1 TABLET (54 MG) IN THE MORNING, 54 AND 36 MG, EVERY DAY
     Route: 048
     Dates: start: 20240927, end: 20240927
  7. METHYLPHENIDATE HYDROCHLORIDE [Suspect]
     Active Substance: METHYLPHENIDATE HYDROCHLORIDE
     Indication: Product used for unknown indication
     Route: 065
     Dates: start: 20250105

REACTIONS (28)
  - Near death experience [Unknown]
  - Drug ineffective [Unknown]
  - Heart rate irregular [Unknown]
  - Malabsorption [Unknown]
  - Mydriasis [Not Recovered/Not Resolved]
  - Eye swelling [Not Recovered/Not Resolved]
  - Hallucination [Not Recovered/Not Resolved]
  - Metabolic surgery [Unknown]
  - Drug hypersensitivity [Not Recovered/Not Resolved]
  - Hypoaesthesia [Not Recovered/Not Resolved]
  - Wheezing [Unknown]
  - Emotional distress [Unknown]
  - Skin lesion [Not Recovered/Not Resolved]
  - Dyspnoea [Not Recovered/Not Resolved]
  - Rash [Not Recovered/Not Resolved]
  - Stress [Unknown]
  - Impaired work ability [Unknown]
  - Malaise [Not Recovered/Not Resolved]
  - Swelling face [Not Recovered/Not Resolved]
  - Nodule [Not Recovered/Not Resolved]
  - Throat tightness [Not Recovered/Not Resolved]
  - Contusion [Not Recovered/Not Resolved]
  - Peripheral swelling [Not Recovered/Not Resolved]
  - Product physical issue [Unknown]
  - Product use issue [Unknown]
  - Product contamination physical [Unknown]
  - Product storage error [Unknown]
  - Loss of personal independence in daily activities [Unknown]

NARRATIVE: CASE EVENT DATE: 20240901
